FAERS Safety Report 6951938 (Version 7)
Quarter: 2013Q3

REPORT INFORMATION
  Report Type: Spontaneous
  Country: US (occurrence: US)
  Receive Date: 20090325
  Receipt Date: 20130906
  Transmission Date: 20140515
  Serious: Yes (Life-Threatening, Hospitalization, Other)
  Sender: FDA-Public Use
  Company Number: US-PFIZER INC-2008042637

PATIENT
  Age: 40 Year
  Sex: Male
  Weight: 68.03 kg

DRUGS (10)
  1. LYRICA [Suspect]
     Indication: PAIN
     Dosage: 25 MG, 2X/DAY
     Dates: start: 2004
  2. LYRICA [Suspect]
     Indication: FIBROMYALGIA
     Dosage: 50 MG, 2X/DAY
  3. LYRICA [Suspect]
     Dosage: UNK
     Route: 048
     Dates: start: 200603, end: 200605
  4. NEURONTIN [Suspect]
     Indication: PAIN
     Dosage: UNK
  5. XANAX [Suspect]
     Indication: MUSCLE SPASMS
     Dosage: 0.5-2MG, AS NEEDED
     Dates: start: 200606
  6. XANAX [Suspect]
     Indication: PSYCHOMOTOR HYPERACTIVITY
  7. XANAX [Suspect]
     Indication: POST-TRAUMATIC STRESS DISORDER
  8. PRILOSEC [Suspect]
     Dosage: 20 MG, 1-2 TIMES A DAY
  9. SYNTHROID [Concomitant]
     Dosage: 50 UG, 1X/DAY
  10. KLONOPIN [Concomitant]
     Indication: POST-TRAUMATIC STRESS DISORDER
     Dosage: UNK

REACTIONS (33)
  - Intentional drug misuse [Unknown]
  - Asthma [Unknown]
  - Convulsion [Unknown]
  - Ataxia [Not Recovered/Not Resolved]
  - Post-traumatic stress disorder [Unknown]
  - Coordination abnormal [Not Recovered/Not Resolved]
  - Impaired driving ability [Not Recovered/Not Resolved]
  - Feeling jittery [Unknown]
  - Muscle spasms [Unknown]
  - Arthropathy [Unknown]
  - Irritability [Not Recovered/Not Resolved]
  - Blood disorder [Unknown]
  - Withdrawal syndrome [Unknown]
  - Somnolence [Not Recovered/Not Resolved]
  - Pain in extremity [Unknown]
  - Stress [Not Recovered/Not Resolved]
  - Anger [Unknown]
  - Gait disturbance [Not Recovered/Not Resolved]
  - Feeling abnormal [Not Recovered/Not Resolved]
  - Insomnia [Not Recovered/Not Resolved]
  - Fibromyalgia [Not Recovered/Not Resolved]
  - Visual impairment [Not Recovered/Not Resolved]
  - Vomiting [Unknown]
  - Diarrhoea [Unknown]
  - Psychomotor hyperactivity [Unknown]
  - Memory impairment [Unknown]
  - Speech disorder [Unknown]
  - Conversion disorder [Unknown]
  - Sedation [Unknown]
  - Ocular hyperaemia [Unknown]
  - Balance disorder [Unknown]
  - Dizziness [Recovered/Resolved]
  - Therapeutic response unexpected [Unknown]
